FAERS Safety Report 7530619-0 (Version None)
Quarter: 2011Q2

REPORT INFORMATION
  Report Type: 
  Country: None (occurrence: None)
  Receive Date: 20110607
  Receipt Date: 20110526
  Transmission Date: 20111010
  Serious: Yes (Hospitalization, Other)
  Sender: FDA-Public Use
  Company Number: FR-BAYER-2011-013364

PATIENT
  Age: 79 Year
  Sex: Female

DRUGS (9)
  1. NEXIUM [Concomitant]
     Dosage: 1 DF, QD
     Route: 048
  2. ESIDRIX [Concomitant]
     Dosage: 0.5 DF, QD
     Route: 048
  3. CIPROFLOXACIN [Suspect]
     Indication: PRODUCT USED FOR UNKNOWN INDICATION
     Dosage: DAILY DOSE 2000 MG
     Route: 048
     Dates: start: 20100920, end: 20101025
  4. LOVENOX [Concomitant]
     Dosage: 1 DF, QD
     Route: 058
  5. CEFEPIME HYDROCHLORIDE [Suspect]
     Dosage: DAILY DOSE 3 G
     Route: 042
     Dates: start: 20101025, end: 20101109
  6. PROPRANOLOL [Concomitant]
     Dosage: 1 DF, QD
     Route: 048
  7. CIPROFLOXACIN [Suspect]
     Dosage: DAILY DOSE 1000 MG
     Route: 048
     Dates: start: 20101025, end: 20101027
  8. RENITEC COMP [Concomitant]
     Dosage: 1 DF, QD
     Route: 048
     Dates: end: 20101025
  9. CEFEPIME HYDROCHLORIDE [Suspect]
     Indication: PRODUCT USED FOR UNKNOWN INDICATION
     Dosage: DAILY DOSE 6 G
     Route: 042
     Dates: start: 20101001, end: 20101001

REACTIONS (5)
  - RASH [None]
  - STATUS EPILEPTICUS [None]
  - RENAL FAILURE [None]
  - RASH MACULO-PAPULAR [None]
  - DRUG RASH WITH EOSINOPHILIA AND SYSTEMIC SYMPTOMS [None]
